FAERS Safety Report 11884724 (Version 1)
Quarter: 2016Q1

REPORT INFORMATION
  Report Type: Spontaneous
  Country: US (occurrence: US)
  Receive Date: 20160104
  Receipt Date: 20160104
  Transmission Date: 20160526
  Serious: Yes (Hospitalization)
  Sender: FDA-Public Use
  Company Number: US-ACCORD-036801

PATIENT
  Age: 48 Year
  Sex: Male

DRUGS (1)
  1. MITOMYCIN. [Suspect]
     Active Substance: MITOMYCIN
     Indication: METASTASIS
     Dosage: DOSE: 30 MG ADMINISTERED FOR 60 MINUTES AT 41?C, FOLLOWED BY ANOTHER 10 MG FOR 40 MINUTES.
     Route: 033

REACTIONS (2)
  - Hydrocele [Recovered/Resolved]
  - Scrotal ulcer [Recovered/Resolved]
